FAERS Safety Report 16288950 (Version 1)
Quarter: 2019Q2

REPORT INFORMATION
  Report Type: Spontaneous
  Country: US (occurrence: US)
  Receive Date: 20190402
  Receipt Date: 20190402
  Transmission Date: 20190711
  Serious: Yes (Hospitalization)
  Sender: FDA-Public Use
  Company Number: None

PATIENT
  Age: 79 Year
  Sex: Male
  Weight: 112 kg

DRUGS (1)
  1. RIVAROXABAN [Suspect]
     Active Substance: RIVAROXABAN
     Indication: PULMONARY EMBOLISM
     Dates: start: 20190117, end: 20190130

REACTIONS (4)
  - Faeces discoloured [None]
  - Haemorrhage [None]
  - Arteriovenous malformation [None]
  - Iron deficiency anaemia [None]
